FAERS Safety Report 7900738 (Version 2)
Quarter: 2013Q1

REPORT INFORMATION
  Report Type: Report from Study
  Country: US (occurrence: US)
  Receive Date: 20110415
  Receipt Date: 20130301
  Transmission Date: 20140127
  Serious: Yes (Other)
  Sender: FDA-Public Use
  Company Number: US-ABBOTT-11P-163-0717330-00

PATIENT
  Age: 34 Year
  Sex: Female

DRUGS (7)
  1. HUMIRA [Suspect]
     Indication: CROHN^S DISEASE
     Dosage: 160MG (BASELINE)/80MG (WEEK 2)
     Route: 058
     Dates: start: 20080624
  2. HUMIRA [Suspect]
     Route: 058
     Dates: end: 20090728
  3. FISH OIL [Concomitant]
     Indication: CROHN^S DISEASE
     Dates: start: 200810
  4. FOLIC ACID [Concomitant]
     Indication: ANAEMIA
     Dates: start: 200810, end: 201010
  5. FOLIC ACID [Concomitant]
     Dates: start: 201010
  6. REMICADE [Concomitant]
     Indication: CROHN^S DISEASE
     Dates: start: 20090812
  7. ENTOCORT [Concomitant]
     Indication: CROHN^S DISEASE
     Dates: start: 201008, end: 20101211

REACTIONS (1)
  - Abortion spontaneous [Unknown]
